FAERS Safety Report 9886313 (Version 2)
Quarter: 2014Q1

REPORT INFORMATION
  Report Type: Report from Study
  Country: US (occurrence: US)
  Receive Date: 20140210
  Receipt Date: 20140210
  Transmission Date: 20141002
  Serious: Yes (Other)
  Sender: FDA-Public Use
  Company Number: PHEH2013US022839

PATIENT
  Age: 60 Year
  Sex: Female
  Weight: 55.33 kg

DRUGS (1)
  1. GILENYA [Suspect]
     Indication: MULTIPLE SCLEROSIS
     Dosage: 0.5 MG, QD
     Route: 048
     Dates: start: 20130709, end: 20131029

REACTIONS (5)
  - Heart rate increased [Recovered/Resolved]
  - Blood pressure increased [Not Recovered/Not Resolved]
  - Balance disorder [Unknown]
  - Migraine [Unknown]
  - Headache [Not Recovered/Not Resolved]
